FAERS Safety Report 20794318 (Version 1)
Quarter: 2022Q2

REPORT INFORMATION
  Report Type: Spontaneous
  Country: GB (occurrence: GB)
  Receive Date: 20220506
  Receipt Date: 20220506
  Transmission Date: 20220721
  Serious: Yes (Other)
  Sender: FDA-Public Use
  Company Number: None

PATIENT
  Age: 20 Year
  Sex: Female
  Weight: 75 kg

DRUGS (3)
  1. LANSOPRAZOLE [Suspect]
     Active Substance: LANSOPRAZOLE
     Dosage: FOR TRIAGE (PROCEDURE), FORM STRENGTH 30 MG
     Route: 048
  2. CIMETIDINE [Concomitant]
     Active Substance: CIMETIDINE
     Dosage: 2 DOSAGE FORMS DAILY; ONE TABLET TWICE A DAY, FORM STRENGTH- 400MG
     Dates: start: 20220426
  3. CYCLIZINE [Concomitant]
     Active Substance: CYCLIZINE
     Dosage: 3 DOSAGE FORMS DAILY; 1 TABLET THREE TIMES DAILY PRN, FORM STRENGTH 50 MG
     Dates: start: 20220425

REACTIONS (1)
  - Depressed mood [Recovering/Resolving]

NARRATIVE: CASE EVENT DATE: 20220425
